FAERS Safety Report 4359929-5 (Version None)
Quarter: 2004Q2

REPORT INFORMATION
  Report Type: 
  Country: None (occurrence: None)
  Receive Date: 20040518
  Receipt Date: 20030410
  Transmission Date: 20050107
  Serious: Yes (Hospitalization)
  Sender: FDA-Public Use
  Company Number: GB-BRISTOL-MYERS SQUIBB COMPANY-12235289

PATIENT
  Age: 36 Year
  Sex: Male
  Weight: 67 kg

DRUGS (10)
  1. ATAZANAVIR [Suspect]
     Indication: HIV INFECTION
     Route: 048
     Dates: start: 20030329, end: 20030410
  2. ABACAVIR [Suspect]
     Indication: HIV INFECTION
     Dosage: STOPPED 10-APR-2003/RESTARTED 24-APR-2003
     Route: 048
     Dates: start: 20030328
  3. DIDANOSINE [Concomitant]
     Indication: HIV INFECTION
     Dosage: STOPPED 10-APR-2003/RESTARTED 24-APR-2003
     Route: 048
     Dates: start: 20030328
  4. TENOFOVIR [Concomitant]
     Indication: HIV INFECTION
     Dosage: STOPPED 10-APR-2003/RESTARTED 24-APR-2003
     Route: 048
     Dates: start: 20030328
  5. VALGANCICLOVIR [Concomitant]
     Route: 048
  6. CO-TRIMOXAZOLE [Concomitant]
  7. COTRIM [Concomitant]
     Route: 048
  8. ONDANSETRON [Concomitant]
     Route: 048
  9. AZITHROMYCIN [Concomitant]
     Route: 048
  10. FLUCONAZOLE [Concomitant]
     Route: 048

REACTIONS (23)
  - ALANINE AMINOTRANSFERASE INCREASED [None]
  - BLOOD ALKALINE PHOSPHATASE INCREASED [None]
  - BLOOD CREATININE INCREASED [None]
  - BLOOD LACTATE DEHYDROGENASE INCREASED [None]
  - CHILLS [None]
  - DECREASED APPETITE [None]
  - DRUG INTOLERANCE [None]
  - DYSGEUSIA [None]
  - GASTRITIS [None]
  - HEPATOSPLENOMEGALY [None]
  - JAUNDICE [None]
  - LOWER RESPIRATORY TRACT INFECTION [None]
  - LYMPHADENOPATHY [None]
  - LYMPHOCYTE COUNT INCREASED [None]
  - NAUSEA [None]
  - PROTEIN TOTAL ABNORMAL [None]
  - PYREXIA [None]
  - RASH [None]
  - RASH MACULO-PAPULAR [None]
  - RED BLOOD CELL COUNT DECREASED [None]
  - THROMBOCYTOPENIA [None]
  - VOMITING [None]
  - WEIGHT DECREASED [None]
